FAERS Safety Report 10206869 (Version 1)
Quarter: 2014Q2

REPORT INFORMATION
  Report Type: Spontaneous
  Country: US (occurrence: None)
  Receive Date: 20140527
  Receipt Date: 20140527
  Transmission Date: 20141212
  Serious: Yes (Life-Threatening, Hospitalization)
  Sender: FDA-Public Use
  Company Number: None

PATIENT
  Age: 32 Year
  Sex: Female
  Weight: 92.5 kg

DRUGS (4)
  1. CARBAMAZEPINE 200 MG APOTEX [Suspect]
     Indication: POST-TRAUMATIC STRESS DISORDER
     Route: 048
     Dates: start: 20140101, end: 20140501
  2. TREXIMET [Concomitant]
  3. AMLODIPINE [Concomitant]
  4. FAMOTIDINE [Concomitant]

REACTIONS (2)
  - Pancytopenia [None]
  - Aplastic anaemia [None]
